FAERS Safety Report 24664699 (Version 6)
Quarter: 2024Q4

REPORT INFORMATION
  Report Type: Report from Study
  Country: US (occurrence: US)
  Receive Date: 20241126
  Receipt Date: 20241227
  Transmission Date: 20250115
  Serious: Yes (Death, Other)
  Sender: ROCHE
  Company Number: US-ROCHE-10000140559

PATIENT
  Age: 83 Year
  Sex: Male

DRUGS (19)
  1. ACTEMRA [Suspect]
     Active Substance: TOCILIZUMAB
     Indication: Rheumatoid arthritis
     Route: 042
  2. ACTEMRA [Suspect]
     Active Substance: TOCILIZUMAB
     Route: 042
  3. PROVENTIL [Concomitant]
     Active Substance: ALBUTEROL
     Dosage: TAKE 3 ML (2.5 MG TOTAL) BY NEBULIZATION EVERY 6 (SIX) HOURS AS NEEDED FOR SHORTNESS OF BREATH
  4. VENTOLIN HFA [Concomitant]
     Active Substance: ALBUTEROL SULFATE
     Dosage: INHALE 2 PUFFS EVERY 4 90 G (FOUR) HOURS AS NEEDED FOR WHEEZING
  5. ASPIRIN [Concomitant]
     Active Substance: ASPIRIN
  6. ZITHROMAX [Concomitant]
     Active Substance: AZITHROMYCIN DIHYDRATE
     Dosage: 1 TAB ONCE A DAY ON MONDAY, WEDNESDAY, FRIDAY
  7. FLUTICASONE [Concomitant]
     Active Substance: FLUTICASONE
  8. FUROSEMIDE [Concomitant]
     Active Substance: FUROSEMIDE
     Dosage: INHALE 1 PUFF 2 (TWO) TIMES A DAY.?TAKE 1 TABLET (40 MG TOTAL) BY MOUTH DAILY
  9. LIDODERM [Concomitant]
     Active Substance: LIDOCAINE
     Dosage: APPLY 3 PATCHES TOPICALLY ONCE DAILY AT NIGHT REMOVE DISCARD PATCH WITHIN 12 HOURS OR AS DIRECTED BY
  10. SALMETEROL [Concomitant]
     Active Substance: SALMETEROL
  11. ALEVE [Concomitant]
     Active Substance: NAPROXEN SODIUM
     Dosage: TAKE 2 TABLETS BY MOUTH 2 (TWO) TIMES A DAY AS NEEDED
     Route: 048
  12. OMEPRAZOLE [Concomitant]
     Active Substance: OMEPRAZOLE
     Dosage: TAKE 1 CAPSULE (40 MG TOTAL) BY MOUTH DAILY
     Route: 048
  13. DELTASONE [Concomitant]
     Active Substance: PREDNISONE
     Dosage: TAKE 1 TABLET (5 MG TOTAL) BY MOUTH DAILY
     Route: 048
  14. CRESTOR [Concomitant]
     Active Substance: ROSUVASTATIN CALCIUM
     Dosage: TAKE 1 TABLET (10 MG TOTAL) BY MOUTH DAILY
     Route: 048
  15. CIALIS [Concomitant]
     Active Substance: TADALAFIL
     Dosage: TAKE 0.5 TABLETS (10 MG TOTAL) BY MOUTH DAILY AS NEEDED
     Route: 048
  16. TAMSULOSIN [Concomitant]
     Active Substance: TAMSULOSIN
     Dosage: TAKE 1 CAPSULE BY MOUTH ONCE DAILY 30 MINUTES AFTER DINNER
     Route: 048
  17. UMECLIDINIUM BROMIDE [Concomitant]
     Active Substance: UMECLIDINIUM BROMIDE
     Dosage: INHALE 1 PUFF DAILY
  18. CYANOCOBALAMIN [Concomitant]
     Active Substance: CYANOCOBALAMIN
     Dosage: TAKE 1 TABLET (1,000 MCG TOTAL) BY MOUTH DAILY
     Route: 048
  19. LEVAQUIN [Concomitant]
     Active Substance: LEVOFLOXACIN
     Dosage: TAKE 1 TABLET (500 MG TOTAL) BY MOUTH DAILY FOR 7 DAYS
     Route: 048

REACTIONS (24)
  - Death [Fatal]
  - Pulmonary hypertension [Unknown]
  - Haematocrit increased [Unknown]
  - Mean cell volume increased [Unknown]
  - Mean cell haemoglobin increased [Unknown]
  - Neutrophil count increased [Unknown]
  - Neutrophil count increased [Unknown]
  - Lymphocyte count decreased [Unknown]
  - Immature granulocyte count increased [Unknown]
  - Platelet count decreased [Unknown]
  - Emphysema [Unknown]
  - Hypoxia [Unknown]
  - Aortic aneurysm [Unknown]
  - Dyspnoea [Unknown]
  - Fracture displacement [Unknown]
  - Hiatus hernia [Unknown]
  - Pulmonary mass [Unknown]
  - Cardiac failure congestive [Unknown]
  - Arteriosclerosis coronary artery [Unknown]
  - Underweight [Unknown]
  - Benign prostatic hyperplasia [Unknown]
  - Injury [Unknown]
  - Cyanosis [Unknown]
  - Haematuria [Unknown]

NARRATIVE: CASE EVENT DATE: 20240919
